FAERS Safety Report 23475797 (Version 1)
Quarter: 2024Q1

REPORT INFORMATION
  Report Type: Spontaneous
  Country: DE (occurrence: DE)
  Receive Date: 20240204
  Receipt Date: 20240204
  Transmission Date: 20240410
  Serious: No
  Sender: FDA-Public Use
  Company Number: DE-EXELIXIS-CABO-23060949

PATIENT
  Age: 80 Year
  Sex: Male

DRUGS (4)
  1. CABOMETYX [Suspect]
     Active Substance: CABOZANTINIB S-MALATE
     Indication: Renal cancer
     Dosage: 40 MG
  2. CABOMETYX [Suspect]
     Active Substance: CABOZANTINIB S-MALATE
     Dosage: UNK
  3. XARELTO [Concomitant]
     Active Substance: RIVAROXABAN
  4. HEART TABLETS [Concomitant]

REACTIONS (5)
  - Impaired healing [Recovering/Resolving]
  - Alopecia [Not Recovered/Not Resolved]
  - Pruritus [Unknown]
  - Dry skin [Not Recovered/Not Resolved]
  - Pain [Unknown]
